FAERS Safety Report 17219060 (Version 1)
Quarter: 2019Q4

REPORT INFORMATION
  Report Type: Spontaneous
  Country: FR (occurrence: FR)
  Receive Date: 20191231
  Receipt Date: 20191231
  Transmission Date: 20200122
  Serious: Yes (Other)
  Sender: FDA-Public Use
  Company Number: FR-JNJFOC-20191245484

PATIENT
  Age: 84 Year
  Sex: Male

DRUGS (2)
  1. HALDOL [Concomitant]
     Active Substance: HALOPERIDOL
     Indication: AGGRESSION
     Dosage: NON ADMINISTR
     Route: 030
     Dates: start: 20191204, end: 20191204
  2. HALDOL DECANOAS [Suspect]
     Active Substance: HALOPERIDOL DECANOATE
     Indication: AGGRESSION
     Dosage: ; IN TOTAL
     Route: 030
     Dates: start: 20191204, end: 20191204

REACTIONS (4)
  - Product preparation error [Recovered/Resolved]
  - Wrong dose [Recovered/Resolved]
  - Hypertensive crisis [Recovered/Resolved]
  - Wrong drug [Recovered/Resolved]

NARRATIVE: CASE EVENT DATE: 20191204
